FAERS Safety Report 5753981-8 (Version None)
Quarter: 2008Q2

REPORT INFORMATION
  Report Type: 
  Country: None (occurrence: None)
  Receive Date: 20080527
  Receipt Date: 20080513
  Transmission Date: 20081010
  Serious: Yes (Hospitalization)
  Sender: FDA-Public Use
  Company Number: 2008-01680

PATIENT
  Age: 81 Year
  Sex: Male

DRUGS (3)
  1. VELCADE [Suspect]
     Indication: MULTIPLE MYELOMA
     Dosage: INTRAVENOUS
     Route: 042
     Dates: start: 20080101
  2. FENTANYL [Concomitant]
  3. MORPHINE SULFATE [Concomitant]

REACTIONS (8)
  - ANOREXIA [None]
  - GAIT DISTURBANCE [None]
  - INSOMNIA [None]
  - MUSCLE ATROPHY [None]
  - NAUSEA [None]
  - SENSORY LOSS [None]
  - THROMBOCYTOPENIA [None]
  - WEIGHT DECREASED [None]
